FAERS Safety Report 8088809-7 (Version None)
Quarter: 2012Q1

REPORT INFORMATION
  Report Type: 
  Country: None (occurrence: None)
  Receive Date: 20120128
  Receipt Date: 20110429
  Transmission Date: 20120608
  Serious: No
  Sender: FDA-Public Use
  Company Number: US-ABBOTT-11P-163-0722751-00

PATIENT
  Age: 51 Year
  Sex: Female

DRUGS (6)
  1. IMDUR [Concomitant]
     Indication: PRODUCT USED FOR UNKNOWN INDICATION
  2. CELEXA [Concomitant]
     Indication: PRODUCT USED FOR UNKNOWN INDICATION
  3. HUMIRA [Suspect]
     Indication: RHEUMATOID ARTHRITIS
     Dates: start: 20081101, end: 20100401
  4. METHOTREXATE [Concomitant]
     Indication: PRODUCT USED FOR UNKNOWN INDICATION
  5. GREEN ARTHRITIS PILL [Concomitant]
     Indication: ARTHRITIS
  6. HYDROCODONE BITARTRATE [Concomitant]
     Indication: PRODUCT USED FOR UNKNOWN INDICATION

REACTIONS (7)
  - DRY SKIN [None]
  - WOUND [None]
  - SLEEP DISORDER [None]
  - COUGH [None]
  - PYREXIA [None]
  - NASOPHARYNGITIS [None]
  - DYSPHONIA [None]
